FAERS Safety Report 10184045 (Version 2)
Quarter: 2014Q3

REPORT INFORMATION
  Report Type: Spontaneous
  Country: FR (occurrence: FR)
  Receive Date: 20140520
  Receipt Date: 20140702
  Transmission Date: 20150326
  Serious: Yes (Hospitalization)
  Sender: FDA-Public Use
  Company Number: FR-EISAI INC-E3810-07105-SPO-FR

PATIENT
  Sex: Female
  Weight: 91 kg

DRUGS (6)
  1. PARIET [Suspect]
     Active Substance: RABEPRAZOLE SODIUM
     Indication: PRODUCT USED FOR UNKNOWN INDICATION
     Route: 048
     Dates: end: 201401
  2. LEVOTHYROX [Suspect]
     Active Substance: LEVOTHYROXINE
     Indication: PRODUCT USED FOR UNKNOWN INDICATION
     Dosage: 75 MCG EVEN, 50 MCG ODD
     Route: 048
  3. AVLOCARDYL LP [Suspect]
     Active Substance: PROPRANOLOL HYDROCHLORIDE
     Indication: MIGRAINE
  4. PYOSTACINE [Suspect]
     Active Substance: PRISTINAMYCIN
     Indication: ERYSIPELAS
     Dosage: UNKNOWN
     Route: 048
     Dates: end: 20140115
  5. EXTENCILLINE [Suspect]
     Active Substance: PENICILLIN G BENZATHINE
     Indication: ERYSIPELAS
     Dosage: UNKNOWN
     Dates: end: 201402
  6. TAMOXIFEN [Suspect]
     Active Substance: TAMOXIFEN
     Indication: PRODUCT USED FOR UNKNOWN INDICATION
     Route: 048

REACTIONS (1)
  - Radiation skin injury [Not Recovered/Not Resolved]

NARRATIVE: CASE EVENT DATE: 2014
